FAERS Safety Report 13598175 (Version 2)
Quarter: 2017Q3

REPORT INFORMATION
  Report Type: Spontaneous
  Country: GB (occurrence: GB)
  Receive Date: 20170531
  Receipt Date: 20170801
  Transmission Date: 20171127
  Serious: Yes (Other)
  Sender: FDA-Public Use
  Company Number: GB-TEVA-770884ACC

PATIENT
  Age: 73 Year
  Sex: Male
  Weight: 67.58 kg

DRUGS (7)
  1. TRAMADOL HYDROCHLORIDE. [Suspect]
     Active Substance: TRAMADOL HYDROCHLORIDE
     Indication: POSTOPERATIVE ANALGESIA
     Dosage: 400 MILLIGRAM DAILY;
     Route: 048
     Dates: start: 20170313, end: 20170330
  2. TRAMADOL HYDROCHLORIDE. [Suspect]
     Active Substance: TRAMADOL HYDROCHLORIDE
     Indication: POSTOPERATIVE ANALGESIA
     Dosage: 150 MILLIGRAM DAILY;
     Route: 048
     Dates: start: 20170309, end: 20170313
  3. TRAMADOL HYDROCHLORIDE. [Suspect]
     Active Substance: TRAMADOL HYDROCHLORIDE
     Indication: POSTOPERATIVE ANALGESIA
     Dosage: IT THEN TOOK ME ABOUT 10 DAYS TO COMPLETELY WEAN MYSELF OF THE TRAMADOL
     Route: 048
     Dates: start: 20170331
  4. RANITIDINE HYDROCHLORIDE. [Concomitant]
     Active Substance: RANITIDINE HYDROCHLORIDE
     Dosage: 300 MILLIGRAM DAILY;
  5. LORATADINE. [Concomitant]
     Active Substance: LORATADINE
     Indication: OESOPHAGITIS
  6. IBUPROFEN? [Concomitant]
     Active Substance: IBUPROFEN
     Indication: ARTHRALGIA
  7. PARACETAMOL [Concomitant]
     Active Substance: ACETAMINOPHEN
     Indication: ARTHRALGIA

REACTIONS (8)
  - Feeling abnormal [Recovered/Resolved]
  - Withdrawal syndrome [Recovered/Resolved]
  - Drug dependence [Recovered/Resolved]
  - Chills [Recovered/Resolved]
  - Suicidal ideation [Recovered/Resolved]
  - Anxiety [Recovered/Resolved]
  - Influenza like illness [Recovered/Resolved]
  - Malaise [Recovered/Resolved]

NARRATIVE: CASE EVENT DATE: 20170330
